FAERS Safety Report 19956331 (Version 1)
Quarter: 2021Q4

REPORT INFORMATION
  Report Type: Spontaneous
  Country: US (occurrence: US)
  Receive Date: 20211014
  Receipt Date: 20211014
  Transmission Date: 20220303
  Serious: Yes (Death, Hospitalization)
  Sender: FDA-Public Use
  Company Number: US-CELGENE-USA-20211003087

PATIENT
  Age: 71 Year
  Sex: Male
  Weight: 44.49 kg

DRUGS (2)
  1. REVLIMID [Suspect]
     Active Substance: LENALIDOMIDE
     Indication: Plasma cell myeloma
     Dosage: 25 MILLIGRAM
     Route: 048
     Dates: start: 20210304
  2. REVLIMID [Suspect]
     Active Substance: LENALIDOMIDE
     Dosage: 22.5 MILLIGRAM
     Route: 048
     Dates: start: 202108, end: 20210819

REACTIONS (1)
  - Death [Fatal]

NARRATIVE: CASE EVENT DATE: 20210925
